FAERS Safety Report 6721955-6 (Version None)
Quarter: 2010Q2

REPORT INFORMATION
  Report Type: 
  Country: None (occurrence: None)
  Receive Date: 20100512
  Receipt Date: 20100505
  Transmission Date: 20101027
  Serious: Yes (Other)
  Sender: FDA-Public Use
  Company Number: A0858139A

PATIENT
  Age: 64 Year
  Sex: Female

DRUGS (5)
  1. ADVAIR DISKUS 100/50 [Suspect]
     Indication: CHRONIC OBSTRUCTIVE PULMONARY DISEASE
     Dosage: 1PUFF TWICE PER DAY
     Route: 055
     Dates: start: 20080101
  2. FOSAMAX [Concomitant]
     Indication: OSTEOPOROSIS
     Route: 065
  3. VITAMIN D [Concomitant]
     Route: 065
  4. CALCIUM [Concomitant]
     Route: 065
  5. PREDNISONE [Concomitant]
     Indication: RHEUMATOID ARTHRITIS
     Route: 065

REACTIONS (2)
  - OSTEOPOROSIS [None]
  - RHEUMATOID ARTHRITIS [None]
